FAERS Safety Report 8322221-8 (Version None)
Quarter: 2012Q2

REPORT INFORMATION
  Report Type: 
  Country: None (occurrence: None)
  Receive Date: 20120430
  Receipt Date: 20120321
  Transmission Date: 20120825
  Serious: No
  Sender: FDA-Public Use
  Company Number: US-COVIDIEN/TYCO HEALTHCARE/MALLINCKRODT-T201201231

PATIENT
  Sex: Male

DRUGS (6)
  1. QUINAPRIL [Concomitant]
     Indication: HYPERTENSION
     Dosage: 40 MG, QD
  2. LIPITOR [Concomitant]
     Indication: BLOOD CHOLESTEROL INCREASED
     Dosage: UNK
  3. OMEPRAZOLE [Concomitant]
     Dosage: 40 MG, QD
  4. SIMVASTATIN [Concomitant]
     Indication: BLOOD CHOLESTEROL INCREASED
     Dosage: 40 MG, QD
  5. KLONOPIN [Concomitant]
     Dosage: 1 MG QHS
  6. HYDROCODONE BITARTRATE + ACETAMINOPHEN [Suspect]
     Indication: PAIN
     Dosage: 10/325 MG  QID
     Route: 048
     Dates: start: 20120101

REACTIONS (1)
  - HEADACHE [None]
